FAERS Safety Report 5978705-0 (Version None)
Quarter: 2008Q4

REPORT INFORMATION
  Report Type: 
  Country: None (occurrence: None)
  Receive Date: 20081204
  Receipt Date: 20081124
  Transmission Date: 20090506
  Serious: Yes (Death, Other)
  Sender: FDA-Public Use
  Company Number: DE-BAYER-200828170GPV

PATIENT
  Age: 58 Year
  Sex: Male

DRUGS (2)
  1. LEVITRA [Suspect]
     Indication: ERECTILE DYSFUNCTION
     Route: 065
  2. NEXIUM [Concomitant]
     Indication: DRUG USE FOR UNKNOWN INDICATION

REACTIONS (8)
  - ANXIETY [None]
  - BACK PAIN [None]
  - BLOOD PRESSURE ABNORMAL [None]
  - CARDIOVASCULAR DISORDER [None]
  - COMPLETED SUICIDE [None]
  - DEPRESSION [None]
  - HALLUCINATION [None]
  - VISION BLURRED [None]
